FAERS Safety Report 4338525-X (Version None)
Quarter: 2004Q2

REPORT INFORMATION
  Report Type: 
  Country: None (occurrence: None)
  Receive Date: 20040409
  Receipt Date: 20040329
  Transmission Date: 20050107
  Serious: Yes (Death, Hospitalization)
  Sender: FDA-Public Use
  Company Number: 205584

PATIENT
  Age: 82 Year
  Sex: Male

DRUGS (7)
  1. RITUXAN [Suspect]
     Indication: EXTRANODAL MARGINAL ZONE B-CELL LYMPHOMA (MALT TYPE)
     Dosage: 375 MG/M2, SINGLE, INTRAVENOUS
     Route: 042
     Dates: start: 20040326, end: 20040326
  2. PROCRIT (EPOETIN ALFA) [Concomitant]
  3. LIPITOR [Concomitant]
  4. ASPIRIN [Concomitant]
  5. TYLENOL [Concomitant]
  6. BENADRYL [Concomitant]
  7. PRBC TRANSFUSION (BLOOD CELLS, RED) [Concomitant]

REACTIONS (13)
  - ARRHYTHMIA [None]
  - BLOOD PRESSURE SYSTOLIC DECREASED [None]
  - DIARRHOEA [None]
  - DYSPNOEA [None]
  - FATIGUE [None]
  - HAEMATOCRIT DECREASED [None]
  - HAEMOGLOBIN DECREASED [None]
  - LUNG INFILTRATION [None]
  - PERIORBITAL OEDEMA [None]
  - PLATELET COUNT DECREASED [None]
  - RESPIRATORY FAILURE [None]
  - SHOCK [None]
  - WHITE BLOOD CELL COUNT INCREASED [None]
